FAERS Safety Report 5814274-3 (Version None)
Quarter: 2008Q3

REPORT INFORMATION
  Report Type: 
  Country: None (occurrence: None)
  Receive Date: 20080715
  Receipt Date: 20080704
  Transmission Date: 20090109
  Serious: Yes (Hospitalization)
  Sender: FDA-Public Use
  Company Number: GXKR2008US06282

PATIENT
  Sex: Female

DRUGS (2)
  1. FLUOXETINE [Suspect]
     Indication: DEPRESSION
     Dosage: 40 MG, QD; 200 MG ONCE/SINGLE; 400 MG, QD; 2800 MG, ONCE/SINGLE
  2. LAMOTRIGINE            (LAMOTRIGINE) UNKNOWN [Suspect]
     Indication: BIPOLAR DISORDER
     Dosage: 200 MG, QD

REACTIONS (6)
  - CONFUSIONAL STATE [None]
  - DELIRIUM [None]
  - DRUG INTERACTION [None]
  - DRUG TOXICITY [None]
  - HALLUCINATIONS, MIXED [None]
  - INTENTIONAL OVERDOSE [None]
